FAERS Safety Report 4890905-X (Version None)
Quarter: 2006Q1

REPORT INFORMATION
  Report Type: 
  Country: None (occurrence: None)
  Receive Date: 20060125
  Receipt Date: 20060119
  Transmission Date: 20060701
  Serious: Yes (Other)
  Sender: FDA-Public Use
  Company Number: JP-JNJFOC-20051100295

PATIENT
  Age: 48 Year
  Sex: Male

DRUGS (1)
  1. TAVANIC [Suspect]
     Route: 048
     Dates: start: 20050908, end: 20050912

REACTIONS (1)
  - URETHRAL CANCER [None]
